FAERS Safety Report 6212925-5 (Version None)
Quarter: 2009Q2

REPORT INFORMATION
  Report Type: 
  Country: None (occurrence: None)
  Receive Date: 20090601
  Receipt Date: 20090522
  Transmission Date: 20091009
  Serious: Yes (Disabling, Other)
  Sender: FDA-Public Use
  Company Number: 2009SP006040

PATIENT
  Age: 47 Year
  Sex: Male

DRUGS (2)
  1. REBETOL [Suspect]
     Indication: HEPATITIS C
     Dosage: PO
     Route: 048
     Dates: start: 19990101, end: 20000101
  2. INTRON A [Suspect]
     Indication: HEPATITIS C
     Dates: start: 19990101, end: 20000201

REACTIONS (15)
  - AMNESIA [None]
  - BALANCE DISORDER [None]
  - CEREBRAL ATROPHY [None]
  - COGNITIVE DISORDER [None]
  - DEMENTIA [None]
  - GENERAL PHYSICAL HEALTH DETERIORATION [None]
  - IMPAIRED WORK ABILITY [None]
  - INFLUENZA [None]
  - MUSCLE SPASMS [None]
  - NEUROGENIC BLADDER [None]
  - NEUROGENIC BOWEL [None]
  - NEUROPATHY PERIPHERAL [None]
  - PAIN [None]
  - PSYCHIATRIC DECOMPENSATION [None]
  - SKIN LESION [None]
